FAERS Safety Report 5364892-4 (Version None)
Quarter: 2007Q2

REPORT INFORMATION
  Report Type: 
  Country: None (occurrence: None)
  Receive Date: 20070607
  Receipt Date: 20070301
  Transmission Date: 20071010
  Serious: Yes (Hospitalization)
  Sender: FDA-Public Use
  Company Number: PIR# 0701040

PATIENT
  Age: 93 Year
  Sex: Male

DRUGS (1)
  1. PROCALAMINE [Suspect]
     Indication: PARENTERAL NUTRITION
     Dosage: 40ML/MIN I.V.
     Route: 042

REACTIONS (1)
  - INJECTION SITE REACTION [None]
